FAERS Safety Report 6462617-2 (Version None)
Quarter: 2009Q4

REPORT INFORMATION
  Report Type: 
  Country: None (occurrence: None)
  Receive Date: 20091130
  Receipt Date: 20091120
  Transmission Date: 20100525
  Serious: Yes (Other)
  Sender: FDA-Public Use
  Company Number: US-ASTRAZENECA-2009SE16198

PATIENT
  Age: 869 Month
  Sex: Female
  Weight: 65.8 kg

DRUGS (2)
  1. CRESTOR [Suspect]
     Route: 048
     Dates: start: 20090601, end: 20090101
  2. CRESTOR [Suspect]
     Route: 048

REACTIONS (5)
  - ABDOMINAL PAIN [None]
  - BLOOD CHOLESTEROL INCREASED [None]
  - DIARRHOEA [None]
  - NAUSEA [None]
  - VOMITING [None]
